FAERS Safety Report 9498271 (Version 2)
Quarter: 2014Q3

REPORT INFORMATION
  Report Type: Spontaneous
  Country: US (occurrence: US)
  Receive Date: 20130904
  Receipt Date: 20140701
  Transmission Date: 20150326
  Serious: Yes (Other)
  Sender: FDA-Public Use
  Company Number: US-PFIZER INC-2013252161

PATIENT
  Sex: Female

DRUGS (2)
  1. LIPITOR [Suspect]
     Active Substance: ATORVASTATIN CALCIUM
     Indication: HYPERTENSION
     Dosage: UNK
     Route: 048
     Dates: start: 2006
  2. LIPITOR [Suspect]
     Active Substance: ATORVASTATIN CALCIUM
     Indication: BLOOD CHOLESTEROL
     Dosage: 80 MG, DAILY
     Route: 048
     Dates: start: 2008

REACTIONS (8)
  - Muscle injury [Unknown]
  - Fatigue [Unknown]
  - Myopathy [Not Recovered/Not Resolved]
  - Nervous system disorder [Unknown]
  - Diabetes mellitus [Unknown]
  - Injury [Unknown]
  - Insulin-requiring type 2 diabetes mellitus [Unknown]
  - Amnesia [Unknown]

NARRATIVE: CASE EVENT DATE: 2011
